FAERS Safety Report 10243822 (Version 1)
Quarter: 2014Q2

REPORT INFORMATION
  Report Type: Spontaneous
  Country: US (occurrence: None)
  Receive Date: 20140616
  Receipt Date: 20140616
  Transmission Date: 20141212
  Serious: Yes (Other)
  Sender: FDA-Public Use
  Company Number: SYM-2014-21907

PATIENT
  Age: 48 Year
  Sex: Female

DRUGS (8)
  1. ZOLPIDEM TARTRATE (ZOLPIDEM TARTRATE) [Suspect]
     Indication: PRODUCT USED FOR UNKNOWN INDICATION
  2. METRONIDAZOLE (METRONIDAZOLE) [Suspect]
     Indication: PRODUCT USED FOR UNKNOWN INDICATION
  3. TRAMADOL HYDROCHLORIDE (TRAMADOL HYDROCHLORIDE) [Suspect]
     Indication: PRODUCT USED FOR UNKNOWN INDICATION
  4. CEFTRIAXONE (CEFTRIAXONE) [Suspect]
     Indication: PRODUCT USED FOR UNKNOWN INDICATION
  5. ESCITALOPRAM OXALATE (ESCITALOPRAM OXALATE) [Suspect]
     Indication: PRODUCT USED FOR UNKNOWN INDICATION
  6. VICODIN (PARACETAMOL, HYDROCODONE BITARTRATE) [Concomitant]
  7. OXYGEN (OXYGEN) [Concomitant]
  8. HYDROMORPHONE (HYDROMORPHONE) [Concomitant]

REACTIONS (1)
  - Generalised tonic-clonic seizure [None]
